FAERS Safety Report 5826232-3 (Version None)
Quarter: 2008Q3

REPORT INFORMATION
  Report Type: 
  Country: None (occurrence: None)
  Receive Date: 20080729
  Receipt Date: 20080717
  Transmission Date: 20090109
  Serious: Yes (Other)
  Sender: FDA-Public Use
  Company Number: US-PFIZER INC-2008013749

PATIENT
  Sex: Male
  Weight: 74.8 kg

DRUGS (14)
  1. CHANTIX [Suspect]
     Indication: SMOKING CESSATION THERAPY
     Dates: start: 20080110, end: 20080120
  2. TRICOR [Concomitant]
  3. VITAMIN TAB [Concomitant]
  4. ALTACE [Concomitant]
  5. EFFEXOR [Concomitant]
  6. METOPROLOL TARTRATE [Concomitant]
  7. ZOCOR [Concomitant]
  8. ACETYLSALICYLIC ACID SRT [Concomitant]
  9. FISH OIL [Concomitant]
  10. ZITHROMAX [Concomitant]
  11. ZOLOFT [Concomitant]
  12. LUNESTA [Concomitant]
  13. TRAMADOL HCL [Concomitant]
  14. NITROGLYCERIN [Concomitant]

REACTIONS (6)
  - ABNORMAL DREAMS [None]
  - ANGER [None]
  - FLASHBACK [None]
  - HALLUCINATION [None]
  - NIGHTMARE [None]
  - PERSONALITY CHANGE [None]
